FAERS Safety Report 8713704 (Version 2)
Quarter: 2012Q4

REPORT INFORMATION
  Report Type: 
  Country: US (occurrence: US)
  Receive Date: 20120808
  Receipt Date: 20121130
  Transmission Date: 20130627
  Serious: Yes (Other)
  Sender: FDA-Public Use
  Company Number: US-ELI_LILLY_AND_COMPANY-US201207008391

PATIENT
  Sex: Male

DRUGS (3)
  1. CYMBALTA [Suspect]
  2. PROZAC [Suspect]
  3. PRISTIQ [Concomitant]

REACTIONS (3)
  - No adverse event [Unknown]
  - No adverse event [Unknown]
  - No adverse event [Unknown]
